FAERS Safety Report 12631926 (Version 2)
Quarter: 2016Q3

REPORT INFORMATION
  Report Type: Spontaneous
  Country: US (occurrence: US)
  Receive Date: 20160808
  Receipt Date: 20160808
  Transmission Date: 20161109
  Serious: No
  Sender: FDA-Public Use
  Company Number: US-BEH-2016061448

PATIENT
  Sex: Female
  Weight: 81 kg

DRUGS (31)
  1. HIZENTRA [Suspect]
     Active Substance: HUMAN IMMUNOGLOBULIN G
     Route: 058
     Dates: start: 20110128
  2. FLONASE [Concomitant]
     Active Substance: FLUTICASONE PROPIONATE
  3. ALLEGRA [Concomitant]
     Active Substance: FEXOFENADINE HYDROCHLORIDE
  4. MULTIVITAMIN [Concomitant]
     Active Substance: VITAMINS
  5. POTASSIUM [Concomitant]
     Active Substance: POTASSIUM
  6. CYMBALTA [Concomitant]
     Active Substance: DULOXETINE HYDROCHLORIDE
  7. AF-LOPERAMIDE [Concomitant]
  8. DIFLUCAN [Concomitant]
     Active Substance: FLUCONAZOLE
  9. HIZENTRA [Suspect]
     Active Substance: HUMAN IMMUNOGLOBULIN G
     Indication: IMMUNODEFICIENCY COMMON VARIABLE
     Route: 058
  10. SINGULAIR [Concomitant]
     Active Substance: MONTELUKAST SODIUM
  11. OMEGA [Concomitant]
     Active Substance: CONVALLARIA MAJALIS\CRATAEGUS LAEVIGATA LEAF\PROXYPHYLLINE
  12. METHIONINE [Concomitant]
     Active Substance: METHIONINE
  13. AZITHROMYCIN ANHYDROUS. [Concomitant]
     Active Substance: AZITHROMYCIN ANHYDROUS
  14. CLARITIN [Concomitant]
     Active Substance: LORATADINE
  15. SYMBICORT [Concomitant]
     Active Substance: BUDESONIDE\FORMOTEROL FUMARATE DIHYDRATE
  16. CALCIUM [Concomitant]
     Active Substance: CALCIUM
  17. GUAIFENESIN. [Concomitant]
     Active Substance: GUAIFENESIN
  18. WELLBUTRIN XL [Concomitant]
     Active Substance: BUPROPION HYDROCHLORIDE
  19. FLORAJEN3 [Concomitant]
  20. ABILIFY [Concomitant]
     Active Substance: ARIPIPRAZOLE
  21. HIZENTRA [Suspect]
     Active Substance: HUMAN IMMUNOGLOBULIN G
     Route: 058
  22. LASIX [Concomitant]
     Active Substance: FUROSEMIDE
  23. LUTEIN [Concomitant]
     Active Substance: LUTEIN
  24. LMX [Concomitant]
     Active Substance: LIDOCAINE
  25. CYCANOCOBALAMIN [Concomitant]
  26. XOLAIR [Concomitant]
     Active Substance: OMALIZUMAB
  27. XANAX [Concomitant]
     Active Substance: ALPRAZOLAM
  28. NORCO [Concomitant]
     Active Substance: ACETAMINOPHEN\HYDROCODONE BITARTRATE
  29. NEXIUM [Concomitant]
     Active Substance: ESOMEPRAZOLE MAGNESIUM
  30. LORAZEPAM. [Concomitant]
     Active Substance: LORAZEPAM
  31. VITAMIN D [Concomitant]
     Active Substance: CHOLECALCIFEROL

REACTIONS (1)
  - Bronchitis [Unknown]
